FAERS Safety Report 7168497-4 (Version None)
Quarter: 2010Q4

REPORT INFORMATION
  Report Type: 
  Country: None (occurrence: None)
  Receive Date: 20101216
  Receipt Date: 20101208
  Transmission Date: 20110411
  Serious: Yes (Hospitalization)
  Sender: FDA-Public Use
  Company Number: NL-ELI_LILLY_AND_COMPANY-NL201012002184

PATIENT
  Sex: Female

DRUGS (6)
  1. GEMCITABINE HCL [Suspect]
     Indication: NON-SMALL CELL LUNG CANCER
     Dosage: 1250 MG/M2, UNK
     Route: 042
     Dates: start: 20100920
  2. CARBOPLATIN [Suspect]
     Indication: NON-SMALL CELL LUNG CANCER
     Dosage: 5 D/F, AUC
     Route: 042
     Dates: start: 20100920
  3. CETUXIMAB [Suspect]
     Indication: NON-SMALL CELL LUNG CANCER
     Dosage: 400 MG/M2, UNK
     Route: 042
     Dates: start: 20101005, end: 20101005
  4. CETUXIMAB [Suspect]
     Dosage: 250 MG/M2, UNK
     Route: 042
  5. VINORELBINE [Suspect]
     Indication: NON-SMALL CELL LUNG CANCER
     Dosage: 30 MG/M2, UNK
     Route: 042
     Dates: start: 20101012
  6. CISPLATIN [Suspect]
     Indication: NON-SMALL CELL LUNG CANCER
     Dosage: 50 MG/M2, UNK
     Route: 042
     Dates: start: 20101012

REACTIONS (1)
  - OESOPHAGITIS [None]
